FAERS Safety Report 18312321 (Version 1)
Quarter: 2020Q3

REPORT INFORMATION
  Report Type: Spontaneous
  Country: US (occurrence: US)
  Receive Date: 20200917
  Receipt Date: 20200917
  Transmission Date: 20201103
  Serious: Yes (Other)
  Sender: FDA-Public Use
  Company Number: None

PATIENT
  Age: 6 Decade
  Sex: Female

DRUGS (5)
  1. INTERFERON BETA NATURAL [Suspect]
     Active Substance: INTERFERON BETA
     Indication: COVID-19
     Dosage: ?          OTHER FREQUENCY:PER 48 HOURS;?
     Dates: start: 2020
  2. METHYLPREDNISOLONE. [Suspect]
     Active Substance: METHYLPREDNISOLONE
     Indication: COVID-19
     Dosage: APPROXIMATELY 14 DAYS
     Dates: start: 2020
  3. IMMUNOGLOBULINS, INTRAVENOUS [Suspect]
     Active Substance: HUMAN IMMUNOGLOBULIN G
     Indication: COVID-19
     Dosage: APPROXIMATED DURATION
     Dates: start: 2020
  4. RITONAVIR. [Concomitant]
     Active Substance: RITONAVIR
     Indication: COVID-19
     Dates: start: 2020
  5. LOPINAVIR [Suspect]
     Active Substance: LOPINAVIR
     Indication: COVID-19
     Dosage: ?          OTHER DOSE:400/100 MG; BD?
     Dates: start: 2020

REACTIONS (6)
  - Myocarditis [None]
  - Pericardial effusion [None]
  - Cardiac failure [None]
  - Myocardial oedema [None]
  - Hypoperfusion [None]
  - Electrocardiogram ST segment elevation [None]
